FAERS Safety Report 8839760 (Version 2)
Quarter: 2012Q4

REPORT INFORMATION
  Report Type: Spontaneous
  Country: GB (occurrence: None)
  Receive Date: 20121011
  Receipt Date: 20121012
  Transmission Date: 20130627
  Serious: Yes (Life-Threatening, Disabling, Other)
  Sender: FDA-Public Use
  Company Number: GER/UKI/12/0026072

PATIENT
  Age: 50 Year
  Sex: Female
  Weight: 50 kg

DRUGS (7)
  1. RISPERIDONE [Suspect]
     Indication: BEHAVIOURAL DISORDER
     Route: 048
     Dates: start: 20080924
  2. RISPERIDONE [Suspect]
     Indication: BEHAVIOURAL DISORDER
     Dosage: doses between 2mg (total) twice daily, Oral
     Dates: start: 200903
  3. RISPERIDONE [Suspect]
     Indication: BEHAVIOURAL DISORDER
     Route: 048
     Dates: start: 20110120, end: 20110124
  4. RISPERIDONE [Suspect]
     Indication: BEHAVIOURAL DISORDER
     Route: 048
     Dates: start: 201103, end: 201112
  5. RISPERIDONE [Suspect]
     Indication: BEHAVIOURAL DISORDER
     Route: 048
  6. ANTIBIOTICS (ANTIBIOTICS) [Concomitant]
  7. ANALGESIC (PARA-SELTZER) [Concomitant]

REACTIONS (13)
  - Dystonia [None]
  - Extrapyramidal disorder [None]
  - Oromandibular dystonia [None]
  - Confusional state [None]
  - Dyspnoea [None]
  - Salivary hypersecretion [None]
  - Emotional distress [None]
  - Pleurothotonus [None]
  - Sedation [None]
  - Muscle spasticity [None]
  - Aphasia [None]
  - Sydenham^s chorea [None]
  - Tardive dyskinesia [None]
